FAERS Safety Report 9657157 (Version 3)
Quarter: 2013Q4

REPORT INFORMATION
  Report Type: Spontaneous
  Country: FR (occurrence: FR)
  Receive Date: 20131030
  Receipt Date: 20131125
  Transmission Date: 20140711
  Serious: Yes (Death, Hospitalization, Other)
  Sender: FDA-Public Use
  Company Number: FR-JNJFOC-20131006497

PATIENT
  Age: 69 Year
  Sex: Male

DRUGS (14)
  1. ZYTIGA [Suspect]
     Indication: PROSTATE CANCER
     Dosage: 4 TABLETS OF 250 MG
     Route: 048
     Dates: start: 20130905, end: 20130930
  2. ZYTIGA [Suspect]
     Indication: PROSTATE CANCER
     Route: 048
     Dates: start: 20131018
  3. CORTANCYL [Suspect]
     Indication: PROSTATE CANCER
     Dosage: 4 TABLETS OF 250 MG
     Route: 048
     Dates: start: 20130905, end: 20131001
  4. BI-PROFENID [Concomitant]
     Indication: VERTEBROPLASTY
     Route: 048
     Dates: start: 20130920, end: 20131002
  5. LAMALINE [Concomitant]
     Indication: VERTEBROPLASTY
     Route: 048
     Dates: start: 20130920, end: 20131002
  6. MYOLASTAN [Concomitant]
     Indication: VERTEBROPLASTY
     Route: 048
     Dates: start: 20130920, end: 20131002
  7. INIPOMP [Concomitant]
     Indication: VERTEBROPLASTY
     Route: 048
     Dates: start: 20130920, end: 20131002
  8. ALLOPURINOL [Concomitant]
     Indication: HYPERURICAEMIA
     Route: 048
  9. ATORVASTATIN [Concomitant]
     Indication: HYPERCHOLESTEROLAEMIA
     Route: 048
  10. KARDEGIC [Concomitant]
     Indication: MYOCARDIAL INFARCTION
     Route: 048
  11. ATENOLOL [Concomitant]
     Indication: HYPERTENSION
     Route: 048
  12. OXYNORM [Concomitant]
     Indication: PAIN
     Route: 048
  13. CALCI-D3 [Concomitant]
     Indication: CALCIUM DEFICIENCY
     Route: 048
  14. CALCI-D3 [Concomitant]
     Indication: HYPOVITAMINOSIS
     Route: 048

REACTIONS (6)
  - Death [Fatal]
  - Hypokalaemia [Recovered/Resolved]
  - Hypercalcaemia [Not Recovered/Not Resolved]
  - Clostridium difficile colitis [Recovered/Resolved]
  - Haemoglobin decreased [Unknown]
  - Vertebroplasty [Unknown]
